FAERS Safety Report 20188946 (Version 1)
Quarter: 2021Q4

REPORT INFORMATION
  Report Type: Spontaneous
  Country: AT (occurrence: AT)
  Receive Date: 20211215
  Receipt Date: 20211215
  Transmission Date: 20220303
  Serious: Yes (Death, Hospitalization, Other)
  Sender: FDA-Public Use
  Company Number: AT-002147023-NVSC2021AT242576

PATIENT
  Sex: Male

DRUGS (2)
  1. PACLITAXEL [Suspect]
     Active Substance: PACLITAXEL
     Indication: Squamous cell carcinoma
     Dosage: 80 MG/M2, QW (KOF)
     Route: 065
     Dates: start: 202008, end: 202011
  2. CETUXIMAB [Concomitant]
     Active Substance: CETUXIMAB
     Indication: Product used for unknown indication
     Dosage: 250 MG/M2, QW (KOF)
     Route: 065
     Dates: start: 202008, end: 202011

REACTIONS (8)
  - General physical health deterioration [Fatal]
  - Anaemia [Unknown]
  - Asthenia [Unknown]
  - Polyneuropathy [Unknown]
  - Pyrexia [Unknown]
  - Metastases to lymph nodes [Unknown]
  - Cachexia [Unknown]
  - Product use in unapproved indication [Unknown]

NARRATIVE: CASE EVENT DATE: 20200801
